FAERS Safety Report 6103093-9 (Version None)
Quarter: 2009Q1

REPORT INFORMATION
  Report Type: 
  Country: None (occurrence: None)
  Receive Date: 20090227
  Receipt Date: 20090212
  Transmission Date: 20090719
  Serious: Yes (Life-Threatening, Hospitalization)
  Sender: FDA-Public Use
  Company Number: DSJ-2009-01513

PATIENT
  Age: 66 Year
  Sex: Male
  Weight: 66.5 kg

DRUGS (7)
  1. OLMESARTAN MEDOXOMIL [Suspect]
     Indication: HYPERTENSION
     Dosage: 40 MG (20 MG, 2 IN 1 D), PER ORAL
     Route: 048
     Dates: start: 20060712, end: 20081203
  2. VERAPAMIL HYDROCHLORIDE [Suspect]
     Indication: ATRIAL FIBRILLATION
     Dosage: 80 MG (40 MG, 2 IN 1 D), PER ORAL
     Route: 048
     Dates: start: 20081201, end: 20081203
  3. TAMBOCOR [Suspect]
     Indication: ATRIAL FIBRILLATION
     Dosage: 450 MG (150 MG, 3 IN 1 D), PER ORAL
     Route: 048
     Dates: start: 20081201, end: 20081203
  4. ARTIST (CARVEDILOL) (CARVEDILOL) [Concomitant]
  5. ALOSITOL (ALLOPURINOL) (ALLOPURINOL) [Concomitant]
  6. LIPORA M (SIMVASTATIN) (SIMVASTATIN) [Concomitant]
  7. WARFARIN SODIUM [Concomitant]

REACTIONS (6)
  - BRADYCARDIA [None]
  - DRUG LEVEL INCREASED [None]
  - FEELING ABNORMAL [None]
  - RENAL FAILURE ACUTE [None]
  - SINUS ARREST [None]
  - SYNCOPE [None]
